FAERS Safety Report 12574442 (Version 3)
Quarter: 2016Q4

REPORT INFORMATION
  Report Type: Spontaneous
  Country: US (occurrence: US)
  Receive Date: 20160720
  Receipt Date: 20161006
  Transmission Date: 20170207
  Serious: No
  Sender: FDA-Public Use
  Company Number: US-GLAXOSMITHKLINE-US2016102144

PATIENT
  Age: 16 Year
  Sex: Female

DRUGS (2)
  1. TRANSDERM SCOP [Suspect]
     Active Substance: SCOPOLAMINE
     Dosage: UNK
  2. TRANSDERM SCOP [Suspect]
     Active Substance: SCOPOLAMINE
     Indication: MOTION SICKNESS
     Dosage: UNK
     Dates: start: 2016, end: 20160709

REACTIONS (8)
  - Application site swelling [Not Recovered/Not Resolved]
  - Hypersensitivity [Unknown]
  - Application site erythema [Not Recovered/Not Resolved]
  - Nausea [Unknown]
  - Toxicity to various agents [Unknown]
  - Application site rash [Not Recovered/Not Resolved]
  - Malaise [Unknown]
  - Product quality issue [Unknown]

NARRATIVE: CASE EVENT DATE: 20160630
